FAERS Safety Report 4379316-3 (Version None)
Quarter: 2004Q2

REPORT INFORMATION
  Report Type: 
  Country: None (occurrence: None)
  Receive Date: 20040617
  Receipt Date: 20040519
  Transmission Date: 20050107
  Serious: Yes (Hospitalization)
  Sender: FDA-Public Use
  Company Number: 200412053FR

PATIENT
  Age: 73 Year
  Sex: Male

DRUGS (11)
  1. LASILIX RETARD 60 MG [Suspect]
     Route: 048
     Dates: start: 20040310, end: 20040327
  2. TRIATEC [Suspect]
     Route: 048
     Dates: start: 20031215, end: 20040327
  3. TENORMIN [Suspect]
     Route: 048
     Dates: start: 20040327
  4. APROVEL [Suspect]
     Route: 048
     Dates: start: 20040310, end: 20040327
  5. SPECIAFOLDINE [Concomitant]
  6. ELISOR [Concomitant]
  7. PLAVIX [Concomitant]
  8. MOPRAL [Concomitant]
  9. RIVOTRIL [Concomitant]
  10. HUMALOG MIX 25 [Concomitant]
  11. TARDYFERON [Concomitant]

REACTIONS (6)
  - HYPERKALAEMIA [None]
  - HYPOVOLAEMIA [None]
  - HYPOVOLAEMIC SHOCK [None]
  - LOSS OF CONSCIOUSNESS [None]
  - MALAISE [None]
  - RENAL FAILURE ACUTE [None]
